FAERS Safety Report 15082049 (Version 1)
Quarter: 2018Q2

REPORT INFORMATION
  Report Type: Spontaneous
  Country: SE (occurrence: SE)
  Receive Date: 20180628
  Receipt Date: 20180628
  Transmission Date: 20180711
  Serious: Yes (Disabling)
  Sender: FDA-Public Use
  Company Number: SE-AMGEN-SWESP2018085197

PATIENT
  Age: 87 Year
  Sex: Male

DRUGS (13)
  1. ENALAPRIL [Concomitant]
     Active Substance: ENALAPRIL
  2. OMEPRAZOL [Concomitant]
     Active Substance: OMEPRAZOLE
  3. CRESTOR [Concomitant]
     Active Substance: ROSUVASTATIN CALCIUM
  4. TROMBYL [Concomitant]
     Active Substance: ASPIRIN
  5. PREDNISOLON [Concomitant]
     Active Substance: PREDNISOLONE
  6. JANUVIA [Concomitant]
     Active Substance: SITAGLIPTIN PHOSPHATE
  7. PROLIA [Suspect]
     Active Substance: DENOSUMAB
     Indication: OSTEOPOROSIS
     Dosage: 60 MG, Q6MO
     Route: 065
     Dates: start: 2013
  8. CALCICHEW [Concomitant]
     Active Substance: CALCIUM CARBONATE
  9. ATENOLOL. [Concomitant]
     Active Substance: ATENOLOL
  10. BEHEPAN [Concomitant]
     Active Substance: HYDROXOCOBALAMIN
  11. FOLACIN [Concomitant]
     Active Substance: FOLIC ACID
  12. METFORMIN [Concomitant]
     Active Substance: METFORMIN HYDROCHLORIDE
  13. NITROLINGUAL [Concomitant]
     Active Substance: NITROGLYCERIN

REACTIONS (1)
  - Osteonecrosis of jaw [Not Recovered/Not Resolved]

NARRATIVE: CASE EVENT DATE: 20180517
